FAERS Safety Report 7814958-1 (Version None)
Quarter: 2011Q4

REPORT INFORMATION
  Report Type: 
  Country: None (occurrence: None)
  Receive Date: 20111013
  Receipt Date: 20111013
  Transmission Date: 20120403
  Serious: Yes (Hospitalization, Other)
  Sender: FDA-Public Use
  Company Number: None

PATIENT
  Age: 34 Year
  Sex: Female
  Weight: 88.4514 kg

DRUGS (1)
  1. HYDROXYCHLOROQUINE SULFATE [Suspect]
     Indication: SYSTEMIC LUPUS ERYTHEMATOSUS
     Dosage: 200MG EVERY DAY ORAL
     Route: 048
     Dates: start: 20110805, end: 20110819

REACTIONS (14)
  - JOINT SWELLING [None]
  - DYSPNOEA [None]
  - FATIGUE [None]
  - DIZZINESS [None]
  - OEDEMA PERIPHERAL [None]
  - MALAISE [None]
  - ACTIVITIES OF DAILY LIVING IMPAIRED [None]
  - ARTHRALGIA [None]
  - RASH [None]
  - NAUSEA [None]
  - OROPHARYNGEAL PAIN [None]
  - DIARRHOEA [None]
  - MATERNAL EXPOSURE DURING PREGNANCY [None]
  - POLLAKIURIA [None]
